FAERS Safety Report 13207523 (Version 1)
Quarter: 2017Q1

REPORT INFORMATION
  Report Type: Spontaneous
  Country: US (occurrence: US)
  Receive Date: 20170209
  Receipt Date: 20170209
  Transmission Date: 20170428
  Serious: No
  Sender: FDA-Public Use
  Company Number: US-SA-2017SA005324

PATIENT
  Sex: Female

DRUGS (8)
  1. LEVOTHYROXINE. [Concomitant]
     Active Substance: LEVOTHYROXINE
  2. FUROSEMIDE. [Concomitant]
     Active Substance: FUROSEMIDE
  3. PRALUENT [Suspect]
     Active Substance: ALIROCUMAB
     Route: 058
     Dates: start: 20161118
  4. ESTRADIOL. [Concomitant]
     Active Substance: ESTRADIOL
  5. SPIRONOLACTONE. [Concomitant]
     Active Substance: SPIRONOLACTONE
  6. CARBIDOPA/LEVODOPA [Concomitant]
  7. METOPROLOL TARTRATE. [Concomitant]
     Active Substance: METOPROLOL TARTRATE
  8. ALIROCUMAB PREFILLED PEN [Concomitant]
     Active Substance: ALIROCUMAB
     Dates: start: 20161118

REACTIONS (1)
  - Muscle spasms [Not Recovered/Not Resolved]
